FAERS Safety Report 24079578 (Version 1)
Quarter: 2024Q3

REPORT INFORMATION
  Report Type: Spontaneous
  Country: US (occurrence: US)
  Receive Date: 20240711
  Receipt Date: 20240711
  Transmission Date: 20241017
  Serious: Yes (Other)
  Sender: LUPIN
  Company Number: US-LUPIN PHARMACEUTICALS INC.-2024-05966

PATIENT

DRUGS (5)
  1. BUPROPION HYDROCHLORIDE [Interacting]
     Active Substance: BUPROPION HYDROCHLORIDE
     Indication: Depression
     Dosage: UNK, 24 HOURS
     Route: 065
     Dates: start: 20230306
  2. BUPROPION HYDROCHLORIDE [Interacting]
     Active Substance: BUPROPION HYDROCHLORIDE
     Indication: Anxiety
  3. TRAZODONE [Interacting]
     Active Substance: TRAZODONE HYDROCHLORIDE
     Indication: Insomnia
     Dosage: 50 MILLIGRAM
     Route: 065
  4. VITAMINS [Concomitant]
     Active Substance: VITAMINS
     Indication: Product used for unknown indication
     Dosage: UNK
     Route: 065
  5. Natural vitality calm [Concomitant]
     Indication: Constipation
     Dosage: UNK, BEFORE BED
     Route: 065

REACTIONS (23)
  - Memory impairment [Unknown]
  - Adverse drug reaction [Unknown]
  - Abnormal dreams [Unknown]
  - Energy increased [Unknown]
  - Rash [Unknown]
  - Pruritus [Unknown]
  - Condition aggravated [Unknown]
  - Thinking abnormal [Unknown]
  - Hot flush [Unknown]
  - Feeling hot [Unknown]
  - Insomnia [Unknown]
  - Mental disorder [Unknown]
  - Fatigue [Unknown]
  - Feeling abnormal [Unknown]
  - Headache [Recovered/Resolved]
  - Dizziness [Unknown]
  - Syncope [Unknown]
  - Pyrexia [Recovered/Resolved]
  - Illness [Unknown]
  - Brain fog [Unknown]
  - Anxiety [Unknown]
  - Chromaturia [Unknown]
  - Drug interaction [Unknown]
